FAERS Safety Report 5633158-7 (Version None)
Quarter: 2008Q1

REPORT INFORMATION
  Report Type: 
  Country: None (occurrence: None)
  Receive Date: 20080221
  Receipt Date: 20080219
  Transmission Date: 20080703
  Serious: Yes (Other)
  Sender: FDA-Public Use
  Company Number: AU-ASTRAZENECA-2008AP00343

PATIENT
  Age: 55 Year
  Sex: Female
  Weight: 55 kg

DRUGS (4)
  1. SEROQUEL [Suspect]
     Indication: BIPOLAR DISORDER
     Route: 048
     Dates: start: 20071101
  2. SEROQUEL [Suspect]
     Route: 048
  3. NOTEN [Concomitant]
     Indication: HYPERTENSION
     Route: 048
     Dates: start: 20050101
  4. LOVAN [Concomitant]
     Indication: DEPRESSION
     Route: 048
     Dates: start: 20070101

REACTIONS (1)
  - GENERALISED OEDEMA [None]
